FAERS Safety Report 4756701-9 (Version None)
Quarter: 2005Q3

REPORT INFORMATION
  Report Type: 
  Country: None (occurrence: None)
  Receive Date: 20050830
  Receipt Date: 20050818
  Transmission Date: 20060218
  Serious: Yes (Hospitalization)
  Sender: FDA-Public Use
  Company Number: FR-SANOFI-SYNTHELABO-A02200502232

PATIENT
  Age: 57 Year
  Sex: Male
  Weight: 53 kg

DRUGS (16)
  1. PLAVIX [Suspect]
     Indication: MYOCARDIAL INFARCTION
     Route: 048
     Dates: start: 20050604, end: 20050726
  2. PLAVIX [Suspect]
     Indication: STENT PLACEMENT
     Route: 048
     Dates: start: 20050604, end: 20050726
  3. CALCIPARINE [Suspect]
     Indication: DEEP VEIN THROMBOSIS
     Route: 058
     Dates: start: 20050720, end: 20050725
  4. CALCIPARINE [Suspect]
     Indication: THROMBOPHLEBITIS SUPERFICIAL
     Route: 058
     Dates: start: 20050720, end: 20050725
  5. KARDEGIC [Suspect]
     Indication: MYOCARDIAL INFARCTION
     Route: 048
     Dates: start: 20050604, end: 20050726
  6. KARDEGIC [Suspect]
     Indication: STENT PLACEMENT
     Route: 048
     Dates: start: 20050604, end: 20050726
  7. TAHOR [Suspect]
     Route: 048
     Dates: start: 20050604, end: 20050726
  8. OMEPRAZOLE [Suspect]
     Indication: DRUG USE FOR UNKNOWN INDICATION
     Route: 048
     Dates: start: 20050604
  9. ZOLOFT [Suspect]
     Indication: DRUG USE FOR UNKNOWN INDICATION
     Route: 048
     Dates: start: 20050604
  10. PREVISCAN [Suspect]
     Indication: DEEP VEIN THROMBOSIS
     Dosage: UNK
     Route: 048
     Dates: start: 20050720
  11. PREVISCAN [Suspect]
     Indication: THROMBOPHLEBITIS SUPERFICIAL
     Dosage: UNK
     Route: 048
     Dates: start: 20050720
  12. VITAMIN E [Suspect]
     Indication: DRUG USE FOR UNKNOWN INDICATION
     Route: 048
     Dates: start: 20050604
  13. TRIATEC [Concomitant]
     Route: 048
     Dates: start: 20050604
  14. CARDENSIEL [Concomitant]
     Route: 048
     Dates: start: 20050604
  15. NIFEDIPINE [Concomitant]
     Indication: ESSENTIAL HYPERTENSION
     Dosage: UNK
     Route: 048
  16. ACEBUTOLOL [Concomitant]
     Indication: ESSENTIAL HYPERTENSION
     Dosage: UNK
     Route: 065

REACTIONS (7)
  - CEREBROVASCULAR ACCIDENT [None]
  - CREATININE RENAL CLEARANCE DECREASED [None]
  - DEEP VEIN THROMBOSIS [None]
  - DISSEMINATED INTRAVASCULAR COAGULATION [None]
  - LUNG NEOPLASM [None]
  - PARANEOPLASTIC SYNDROME [None]
  - PERIPHERAL ISCHAEMIA [None]
